FAERS Safety Report 7496165-8 (Version None)
Quarter: 2011Q2

REPORT INFORMATION
  Report Type: 
  Country: None (occurrence: None)
  Receive Date: 20110520
  Receipt Date: 20110520
  Transmission Date: 20111010
  Serious: Yes (Other)
  Sender: FDA-Public Use
  Company Number: None

PATIENT
  Sex: Male
  Weight: 57.6975 kg

DRUGS (2)
  1. MINOCYCLINE HCL [Suspect]
     Indication: ACNE
     Dosage: 100 MG  QD PO
     Route: 048
     Dates: start: 20110415, end: 20110419
  2. WELLBUTRIN XL [Suspect]
     Indication: ATTENTION DEFICIT/HYPERACTIVITY DISORDER
     Dosage: 300MG QD PO
     Route: 048
     Dates: start: 20110405, end: 20110419

REACTIONS (2)
  - CHEST PAIN [None]
  - PALPITATIONS [None]
